FAERS Safety Report 7296194-3 (Version None)
Quarter: 2011Q1

REPORT INFORMATION
  Report Type: 
  Country: None (occurrence: None)
  Receive Date: 20110216
  Receipt Date: 20110208
  Transmission Date: 20110831
  Serious: Yes (Other)
  Sender: FDA-Public Use
  Company Number: DE-SANOFI-AVENTIS-2011SA009054

PATIENT
  Age: 80 Year

DRUGS (1)
  1. CLOPIDOGREL BISULFATE [Suspect]
     Route: 065

REACTIONS (1)
  - CONDUCTION DISORDER [None]
